FAERS Safety Report 22246871 (Version 5)
Quarter: 2023Q4

REPORT INFORMATION
  Report Type: Spontaneous
  Country: US (occurrence: US)
  Receive Date: 20230424
  Receipt Date: 20231108
  Transmission Date: 20240109
  Serious: No
  Sender: FDA-Public Use
  Company Number: US-KARYOPHARM-2023KPT001086

PATIENT

DRUGS (22)
  1. XPOVIO [Suspect]
     Active Substance: SELINEXOR
     Indication: Plasma cell myeloma
     Dosage: 60 MG, WEEKLY
     Route: 048
     Dates: start: 20230405, end: 20230501
  2. XPOVIO [Suspect]
     Active Substance: SELINEXOR
     Dosage: 60 MG, WEEKLY
     Route: 048
     Dates: start: 2023, end: 202306
  3. XPOVIO [Suspect]
     Active Substance: SELINEXOR
     Dosage: 20 MG, WEEKLY
     Route: 048
     Dates: start: 202306, end: 2023
  4. XPOVIO [Suspect]
     Active Substance: SELINEXOR
     Dosage: 20 MG, 3X/WEEK
     Route: 048
     Dates: start: 2023
  5. ACYCLOVIR [Concomitant]
     Active Substance: ACYCLOVIR
  6. DILTIAZEM [Concomitant]
     Active Substance: DILTIAZEM
  7. ENTECAVIR [Concomitant]
     Active Substance: ENTECAVIR
  8. GABAPENTIN [Concomitant]
     Active Substance: GABAPENTIN
  9. INSULIN GLARGINE [Concomitant]
     Active Substance: INSULIN GLARGINE
  10. INSULIN LISPRO [Concomitant]
     Active Substance: INSULIN LISPRO
  11. LEVOTHYROXINE [Concomitant]
     Active Substance: LEVOTHYROXINE
  12. LORAZEPAM [Concomitant]
     Active Substance: LORAZEPAM
  13. METHYLPREDNISOLONE [Concomitant]
     Active Substance: METHYLPREDNISOLONE
  14. METOPROLOL [Concomitant]
     Active Substance: METOPROLOL
  15. NYSTATIN [Concomitant]
     Active Substance: NYSTATIN
  16. OLANZAPINE [Concomitant]
     Active Substance: OLANZAPINE
  17. POMALYST [Concomitant]
     Active Substance: POMALIDOMIDE
  18. PROMETHAZINE [Concomitant]
     Active Substance: PROMETHAZINE HYDROCHLORIDE
  19. TRAMADOL [Concomitant]
     Active Substance: TRAMADOL\TRAMADOL HYDROCHLORIDE
  20. XARELTO [Concomitant]
     Active Substance: RIVAROXABAN
  21. ZOFRAN [Concomitant]
     Active Substance: ONDANSETRON HYDROCHLORIDE
  22. ZARXIO [Concomitant]
     Active Substance: FILGRASTIM-SNDZ

REACTIONS (9)
  - Malaise [Unknown]
  - Diarrhoea [Not Recovered/Not Resolved]
  - Asthenia [Not Recovered/Not Resolved]
  - Decreased appetite [Not Recovered/Not Resolved]
  - Nausea [Not Recovered/Not Resolved]
  - Fatigue [Not Recovered/Not Resolved]
  - Constipation [Not Recovered/Not Resolved]
  - Neutropenia [Unknown]
  - Product dose omission issue [Unknown]

NARRATIVE: CASE EVENT DATE: 20230101
